FAERS Safety Report 15544222 (Version 1)
Quarter: 2018Q4

REPORT INFORMATION
  Report Type: Report from Study
  Country: FR (occurrence: FR)
  Receive Date: 20181024
  Receipt Date: 20181024
  Transmission Date: 20190205
  Serious: Yes (Hospitalization)
  Sender: FDA-Public Use
  Company Number: FR-ROCHE-2201434

PATIENT
  Age: 57 Year
  Sex: Female

DRUGS (13)
  1. BEVACIZUMAB. [Suspect]
     Active Substance: BEVACIZUMAB
     Indication: OVARIAN EPITHELIAL CANCER RECURRENT
     Dosage: ON DAY 1 AND 15 OF EVERY CYCLE?ON 13/09/2018, PATIENT RECEIVED LAST DOSE OF BEVACIZUMAB BEFORE THE E
     Route: 042
     Dates: start: 20180720, end: 20180926
  2. CARBOPLATIN. [Suspect]
     Active Substance: CARBOPLATIN
     Indication: FALLOPIAN TUBE CANCER
  3. PEGYLATED LIPOSOMAL DOXORUBICIN [Suspect]
     Active Substance: DOXORUBICIN
     Indication: OVARIAN EPITHELIAL CANCER RECURRENT
     Dosage: ON 17/08/2018, PATIENT RECEIVED LAST DOSE OF PLD BEFORE THE EVENT.
     Route: 042
     Dates: start: 20180720
  4. SPASFON (FRANCE) [Concomitant]
     Active Substance: PHLOROGLUCINOL\1,3,5-TRIMETHOXYBENZENE
  5. BEVACIZUMAB. [Suspect]
     Active Substance: BEVACIZUMAB
     Indication: FALLOPIAN TUBE CANCER
  6. PARACETAMOL [Concomitant]
     Active Substance: ACETAMINOPHEN
  7. BLINDED ATEZOLIZUMAB [Suspect]
     Active Substance: ATEZOLIZUMAB
     Indication: OVARIAN EPITHELIAL CANCER RECURRENT
     Dosage: ON 17/08/2018, PATIENT RECEIVED LAST DOSE OF ATEZOLIZUMAB BEFORE THE EVENT.
     Route: 042
     Dates: start: 20180720, end: 20180913
  8. BEVACIZUMAB. [Suspect]
     Active Substance: BEVACIZUMAB
     Indication: MALIGNANT PERITONEAL NEOPLASM
  9. CARBOPLATIN. [Suspect]
     Active Substance: CARBOPLATIN
     Indication: MALIGNANT PERITONEAL NEOPLASM
  10. BLINDED ATEZOLIZUMAB [Suspect]
     Active Substance: ATEZOLIZUMAB
     Indication: FALLOPIAN TUBE CANCER
  11. BLINDED ATEZOLIZUMAB [Suspect]
     Active Substance: ATEZOLIZUMAB
     Indication: MALIGNANT PERITONEAL NEOPLASM
  12. CARBOPLATIN. [Suspect]
     Active Substance: CARBOPLATIN
     Indication: OVARIAN EPITHELIAL CANCER RECURRENT
     Dosage: AT AREA UNDER CURVE (AUC) =5, ON DAY 1 OF EVERY CYCLE?ON 13/09/2018, PATIENT RECEIVED LAST DOSE OF C
     Route: 042
     Dates: start: 20180720
  13. IMOVANE [Concomitant]
     Active Substance: ZOPICLONE

REACTIONS (3)
  - Anaemia [Not Recovered/Not Resolved]
  - Thrombocytopenia [Not Recovered/Not Resolved]
  - Neutropenia [Not Recovered/Not Resolved]

NARRATIVE: CASE EVENT DATE: 20180926
